FAERS Safety Report 5371378-X (Version None)
Quarter: 2007Q2

REPORT INFORMATION
  Report Type: 
  Country: None (occurrence: None)
  Receive Date: 20070615
  Receipt Date: 20061115
  Transmission Date: 20071010
  Serious: Yes (Other)
  Sender: FDA-Public Use
  Company Number: 200614639US

PATIENT
  Age: 81 Year
  Sex: Female
  Weight: 100 kg

DRUGS (28)
  1. LANTUS [Suspect]
     Indication: DIABETES MELLITUS NON-INSULIN-DEPENDENT
     Dosage: 32 U
     Dates: start: 20060502
  2. LANTUS [Suspect]
     Indication: DIABETES MELLITUS NON-INSULIN-DEPENDENT
     Dosage: 31 U
  3. INSULIN ASPART (NOVLOG) [Concomitant]
  4. AMLODIPINE (NORVASC 00972401/) [Concomitant]
  5. PRINIVIL [Concomitant]
  6. OPTICLICK [Suspect]
     Dates: start: 20060517
  7. HYDROCHLOROTHIAZIDE (HYDRODIURIL) [Concomitant]
  8. FOLIC ACID, PYRIDOXINE, CYANOCOBALAMIN (FOLTX /01502401/) [Concomitant]
  9. ASPIRIN [Concomitant]
  10. FERROUS SULFATE [Concomitant]
  11. CYANOCOBALAMIN (VITAMIN B-12) [Concomitant]
  12. ERYTHROPOIETIN (PROCRIT /00909301/) [Concomitant]
  13. CALCIUM CHLORIDE [Concomitant]
  14. LEVOBUTEROL [Concomitant]
  15. ATORVASTATIN CALCIUM (LIPITOR) [Concomitant]
  16. BUPROPION (WELLBUTRIN /00700501/) [Concomitant]
  17. PROZAC [Concomitant]
  18. POTASSIUM CHLORIDE [Concomitant]
  19. ESOMEPRAZOLE MAGNESIUM [Concomitant]
  20. FUROSEMIDE (LASIX /0032601/) [Concomitant]
  21. METHYLPREDNISOLONE SODIUM SUCCINATE (SOLUMDEDROL) [Concomitant]
  22. GUAIFENESIN (HUMIBID) [Concomitant]
  23. XOPENEX [Concomitant]
  24. IPRATROPIUM BROMIDE (ATROVENT) [Concomitant]
  25. CLOPIDOGREL (PLAVIX /01220701/) [Concomitant]
  26. TENORMIN [Concomitant]
  27. OXYGEN [Concomitant]
  28. INSULIN HUMAN ZINCE SUSPENSION (NOVOLIN L) [Concomitant]

REACTIONS (5)
  - BLOOD GLUCOSE DECREASED [None]
  - FATIGUE [None]
  - FEELING ABNORMAL [None]
  - HYPERGLYCAEMIA [None]
  - OEDEMA PERIPHERAL [None]
